FAERS Safety Report 14414162 (Version 2)
Quarter: 2018Q1

REPORT INFORMATION
  Report Type: Spontaneous
  Country: TR (occurrence: TR)
  Receive Date: 20180120
  Receipt Date: 20180217
  Transmission Date: 20180509
  Serious: Yes (Life-Threatening, Hospitalization)
  Sender: FDA-Public Use
  Company Number: TR-SUN PHARMACEUTICAL INDUSTRIES LTD-2018R1-160604

PATIENT
  Age: 16 Year
  Sex: Female

DRUGS (1)
  1. VERAPAMIL [Suspect]
     Active Substance: VERAPAMIL HYDROCHLORIDE
     Indication: PRODUCT USED FOR UNKNOWN INDICATION
     Route: 065

REACTIONS (7)
  - Cardiac arrest [Unknown]
  - Intentional overdose [Unknown]
  - Suicide attempt [Unknown]
  - Pleural effusion [Unknown]
  - Toxicity to various agents [Unknown]
  - Bradycardia [Unknown]
  - Brugada syndrome [Unknown]
